FAERS Safety Report 25350307 (Version 4)
Quarter: 2025Q3

REPORT INFORMATION
  Report Type: Report from Study
  Country: US (occurrence: US)
  Receive Date: 20250523
  Receipt Date: 20250808
  Transmission Date: 20251021
  Serious: Yes (Other)
  Sender: BRISTOL-MYERS SQUIBB COMPANY
  Company Number: US-BRISTOL-MYERS SQUIBB COMPANY-2025-073686

PATIENT
  Age: 70 Year
  Sex: Male
  Weight: 86.18 kg

DRUGS (1)
  1. ELIQUIS [Suspect]
     Active Substance: APIXABAN
     Indication: Atrial fibrillation
     Route: 048

REACTIONS (9)
  - Anaemia [Recovering/Resolving]
  - Chest pain [Unknown]
  - Dizziness [Not Recovered/Not Resolved]
  - Weight increased [Unknown]
  - Feeling abnormal [Unknown]
  - Heart rate increased [Recovering/Resolving]
  - Deafness [Unknown]
  - Rash pruritic [Not Recovered/Not Resolved]
  - Chest discomfort [Unknown]
